FAERS Safety Report 8793517 (Version 3)
Quarter: 2012Q4

REPORT INFORMATION
  Report Type: 
  Country: GB (occurrence: GB)
  Receive Date: 20120917
  Receipt Date: 20121228
  Transmission Date: 20130627
  Serious: Yes (Other)
  Sender: FDA-Public Use
  Company Number: GB-TEVA-358047ISR

PATIENT
  Age: 82 Year
  Sex: Female

DRUGS (4)
  1. PREDNISOLONE [Suspect]
  2. LOTEMAX [Suspect]
     Indication: FUNGAL INFECTION
     Dosage: one drop into both eyes daily
     Route: 047
     Dates: start: 201006
  3. DEXAMETHASONE [Suspect]
  4. TIMOLOL [Suspect]

REACTIONS (2)
  - Diabetes mellitus [Unknown]
  - Off label use [Unknown]
